FAERS Safety Report 9868402 (Version 1)
Quarter: 2014Q1

REPORT INFORMATION
  Report Type: Report from Study
  Country: US (occurrence: US)
  Receive Date: 20140204
  Receipt Date: 20140204
  Transmission Date: 20141002
  Serious: Yes (Other)
  Sender: FDA-Public Use
  Company Number: PHEH2014US002317

PATIENT
  Sex: Female

DRUGS (1)
  1. ILARIS [Suspect]
     Dosage: 600 MG, EVERY 4 WEEKS
     Route: 058

REACTIONS (2)
  - Optic neuritis [Unknown]
  - Brain oedema [Unknown]
